FAERS Safety Report 20030940 (Version 1)
Quarter: 2021Q4

REPORT INFORMATION
  Report Type: Spontaneous
  Country: US (occurrence: None)
  Receive Date: 20211103
  Receipt Date: 20211103
  Transmission Date: 20220303
  Serious: Yes (Other)
  Sender: FDA-Public Use
  Company Number: US-FARMAPROD-202108-1542

PATIENT
  Age: 77 Year
  Sex: Female

DRUGS (15)
  1. OXERVATE [Suspect]
     Active Substance: CENEGERMIN-BKBJ
     Indication: Neurotrophic keratopathy
     Route: 047
     Dates: start: 20210830, end: 20210907
  2. PROBIOTICS NOS [Concomitant]
     Active Substance: PROBIOTICS NOS
  3. VITAMIN D3 [Concomitant]
     Active Substance: CHOLECALCIFEROL
  4. VITAMIN B12 [Concomitant]
     Active Substance: CYANOCOBALAMIN
  5. OFLOXACIN [Concomitant]
     Active Substance: OFLOXACIN
  6. METFORMIN [Concomitant]
     Active Substance: METFORMIN HYDROCHLORIDE
  7. ROSUVASTATIN CALCIUM [Concomitant]
     Active Substance: ROSUVASTATIN CALCIUM
  8. ROSUVASTATIN CALCIUM [Concomitant]
     Active Substance: ROSUVASTATIN CALCIUM
  9. METOPROLOL TARTRATE [Concomitant]
     Active Substance: METOPROLOL TARTRATE
  10. NEXIUM [Concomitant]
     Active Substance: ESOMEPRAZOLE MAGNESIUM
  11. LORAZEPAM [Concomitant]
     Active Substance: LORAZEPAM
  12. DIFLOX [Concomitant]
     Dates: start: 20210809, end: 20210909
  13. SYSTANE (HYPROMELLOSE 2910 (4000 MPA.S)) [Concomitant]
     Active Substance: HYPROMELLOSE 2910 (4000 MPA.S)
     Dates: start: 20210909
  14. VIGAMOX [Concomitant]
     Active Substance: MOXIFLOXACIN HYDROCHLORIDE
     Dates: start: 20210909
  15. PRED FORTE [Concomitant]
     Active Substance: PREDNISOLONE ACETATE
     Dates: start: 20210909

REACTIONS (9)
  - Visual impairment [Unknown]
  - Eye pain [Unknown]
  - Photophobia [Unknown]
  - Eye irritation [Unknown]
  - Ocular discomfort [Unknown]
  - Vision blurred [Unknown]
  - Ophthalmic herpes zoster [Not Recovered/Not Resolved]
  - Eye swelling [Unknown]
  - Eye irritation [Unknown]

NARRATIVE: CASE EVENT DATE: 20210830
